FAERS Safety Report 7230580-2 (Version None)
Quarter: 2011Q1

REPORT INFORMATION
  Report Type: 
  Country: None (occurrence: None)
  Receive Date: 20110118
  Receipt Date: 20110107
  Transmission Date: 20110831
  Serious: Yes (Other)
  Sender: FDA-Public Use
  Company Number: PHHY2011US01889

PATIENT
  Sex: Female

DRUGS (1)
  1. FEMARA [Suspect]
     Dosage: 2.5 MG

REACTIONS (4)
  - MUSCLE SPASMS [None]
  - PAIN [None]
  - TENDON PAIN [None]
  - ARTHRITIS [None]
